FAERS Safety Report 11539769 (Version 1)
Quarter: 2015Q3

REPORT INFORMATION
  Report Type: Spontaneous
  Country: US (occurrence: None)
  Receive Date: 20150922
  Receipt Date: 20150922
  Transmission Date: 20151125
  Serious: No
  Sender: FDA-Public Use
  Company Number: None

PATIENT
  Age: 59 Year
  Sex: Female
  Weight: 60.78 kg

DRUGS (14)
  1. FLUCONAZOLE. [Concomitant]
     Active Substance: FLUCONAZOLE
  2. LEVOTHYROXINE. [Concomitant]
     Active Substance: LEVOTHYROXINE
  3. SIVASTATIN RATIOPHARM 80 MG [Concomitant]
     Active Substance: SIMVASTATIN
  4. ASPRIN [Concomitant]
     Active Substance: ASPIRIN
  5. CALCIUM 600 + D + MINERALS [Concomitant]
  6. METOPROLOL SUCCINATE. [Concomitant]
     Active Substance: METOPROLOL SUCCINATE
  7. ALLEGRA [Concomitant]
     Active Substance: FEXOFENADINE HYDROCHLORIDE
  8. OXAPROZINE [Concomitant]
  9. PREMARIN [Concomitant]
     Active Substance: ESTROGENS, CONJUGATED
  10. TYLENOL [Concomitant]
     Active Substance: ACETAMINOPHEN
  11. DULOXETINE HYDROCHLORIDE. [Suspect]
     Active Substance: DULOXETINE HYDROCHLORIDE
     Indication: ARTHRALGIA
     Dosage: 1  ONCE A DAY  BY MOUTH
     Route: 048
     Dates: start: 20130103, end: 201507
  12. FLEXERIL [Concomitant]
     Active Substance: CYCLOBENZAPRINE HYDROCHLORIDE
  13. NORCO 7.5 [Concomitant]
  14. AMITRIPTYLINE [Concomitant]
     Active Substance: AMITRIPTYLINE

REACTIONS (2)
  - Oestradiol increased [None]
  - Weight increased [None]

NARRATIVE: CASE EVENT DATE: 20150417
